FAERS Safety Report 20701149 (Version 1)
Quarter: 2022Q2

REPORT INFORMATION
  Report Type: Report from Study
  Country: CO (occurrence: CO)
  Receive Date: 20220412
  Receipt Date: 20220412
  Transmission Date: 20220721
  Serious: Yes (Other)
  Sender: FDA-Public Use
  Company Number: CO-NOVARTISPH-NVSC2022CO019337

PATIENT
  Sex: Female
  Weight: 54 kg

DRUGS (8)
  1. TYKERB [Suspect]
     Active Substance: LAPATINIB DITOSYLATE
     Indication: Breast cancer
     Dosage: 1500 MG, QD (6 X 250 MG) (DAILY EVERY 24 HOURS)
     Route: 048
     Dates: start: 202109, end: 20211226
  2. TYKERB [Suspect]
     Active Substance: LAPATINIB DITOSYLATE
     Dosage: 1500 MG, QD
     Route: 048
     Dates: start: 20220116
  3. TYKERB [Suspect]
     Active Substance: LAPATINIB DITOSYLATE
     Dosage: 1500 MG, QD (6 X 250 MG) (DAILY EVERY 24 HOURS)
     Route: 048
     Dates: start: 202201
  4. TYKERB [Suspect]
     Active Substance: LAPATINIB DITOSYLATE
     Dosage: 1250 MG, QD (FORMULATION: DISPENSABLE TABLET)
     Route: 048
  5. TYKERB [Suspect]
     Active Substance: LAPATINIB DITOSYLATE
     Dosage: 250 MG (140 TABLETS)
     Route: 048
     Dates: start: 20220322
  6. CAPECITABINE [Concomitant]
     Active Substance: CAPECITABINE
     Indication: Breast cancer
     Dosage: UNK UNK, QD
     Route: 065
  7. CAPECITABINE [Concomitant]
     Active Substance: CAPECITABINE
     Dosage: 2 DOSAGE FORM, Q12H
     Route: 065
  8. CAPECITABINE [Concomitant]
     Active Substance: CAPECITABINE
     Dosage: 500 MG, Q12H (EVERY 12 HOURS FOR 14 DAYS AND REST 7 DAYS)
     Route: 048

REACTIONS (8)
  - Breast cancer [Recovered/Resolved]
  - Confusional state [Unknown]
  - Tumour pain [Unknown]
  - Breast inflammation [Unknown]
  - Dry skin [Unknown]
  - Sensitive skin [Unknown]
  - Decreased immune responsiveness [Unknown]
  - Product use issue [Unknown]
